FAERS Safety Report 9635055 (Version 2)
Quarter: 2013Q4

REPORT INFORMATION
  Report Type: Spontaneous
  Country: US (occurrence: US)
  Receive Date: 20131021
  Receipt Date: 20131021
  Transmission Date: 20140711
  Serious: No
  Sender: FDA-Public Use
  Company Number: US-PURDUE-USA-2013-0102537

PATIENT
  Sex: Female

DRUGS (5)
  1. BUTRANS [Suspect]
     Indication: PAIN
     Dosage: 5 MCG/HR, UNK
     Route: 062
  2. BUTRANS [Suspect]
     Dosage: 10 MCG/HR, UNK
     Route: 062
  3. BUTRANS [Suspect]
     Dosage: 20 MCG/HR, UNK
     Route: 062
  4. NSAID^S [Suspect]
     Indication: PRODUCT USED FOR UNKNOWN INDICATION
     Route: 048
  5. VICOPROFEN [Concomitant]
     Indication: PAIN

REACTIONS (9)
  - Application site burn [Unknown]
  - Pain [Recovering/Resolving]
  - Back pain [Unknown]
  - Abdominal distension [Unknown]
  - Nausea [Recovered/Resolved]
  - Abdominal pain upper [Unknown]
  - Abdominal pain [Unknown]
  - Drug ineffective [Unknown]
  - Application site rash [Unknown]
